FAERS Safety Report 13279023 (Version 1)
Quarter: 2017Q1

REPORT INFORMATION
  Report Type: Spontaneous
  Country: US (occurrence: US)
  Receive Date: 20170228
  Receipt Date: 20170228
  Transmission Date: 20170428
  Serious: No
  Sender: FDA-Public Use
  Company Number: US-ALLERGAN-1000082289

PATIENT
  Sex: Female
  Weight: 105 kg

DRUGS (15)
  1. FENTANYL. [Concomitant]
     Active Substance: FENTANYL
     Indication: KNEE OPERATION
  2. CENTRUM SILVER [Concomitant]
     Active Substance: MINERALS\VITAMINS
     Indication: VITAMIN SUPPLEMENTATION
  3. FENTANYL. [Concomitant]
     Active Substance: FENTANYL
     Indication: ARTHRITIS
  4. XANAX [Concomitant]
     Active Substance: ALPRAZOLAM
     Indication: ANXIETY
     Dosage: .5 MG, UNK
     Route: 048
  5. SAVELLA [Suspect]
     Active Substance: MILNACIPRAN HYDROCHLORIDE
     Indication: FIBROMYALGIA
     Dosage: UNK
  6. OXYCODONE [Concomitant]
     Active Substance: OXYCODONE
     Indication: FIBROMYALGIA
     Dosage: 10MG, 1/2 TABLET TO 1 TABLET EVERY 8 HOURS AS NEEDED
  7. FENTANYL. [Concomitant]
     Active Substance: FENTANYL
     Indication: ILL-DEFINED DISORDER
  8. CENTRUM SILVER [Concomitant]
     Active Substance: MINERALS\VITAMINS
     Indication: ASTHENIA
     Dosage: UNK UNK, QD
     Route: 048
  9. OXYCODONE [Concomitant]
     Active Substance: OXYCODONE
     Indication: ILL-DEFINED DISORDER
  10. VITAMIN D3 [Concomitant]
     Active Substance: CHOLECALCIFEROL
     Indication: VITAMIN D DECREASED
     Dosage: 2000 IU, QD
     Route: 048
  11. VITAMIN B12 [Concomitant]
     Active Substance: CYANOCOBALAMIN
     Indication: ASTHENIA
     Dosage: MONTHLY
  12. PROZAC [Interacting]
     Active Substance: FLUOXETINE HYDROCHLORIDE
     Indication: DEPRESSION
     Dosage: UNK
  13. OXYCODONE [Concomitant]
     Active Substance: OXYCODONE
     Indication: KNEE OPERATION
  14. OXYCODONE [Concomitant]
     Active Substance: OXYCODONE
     Indication: ARTHRITIS
  15. FENTANYL. [Concomitant]
     Active Substance: FENTANYL
     Indication: FIBROMYALGIA
     Dosage: 25 MG, FREQUENCY 1,FREQ_TIME 3,FREQ UNIT DAYS
     Route: 062

REACTIONS (5)
  - General physical condition abnormal [Recovered/Resolved]
  - Drug interaction [Recovered/Resolved]
  - Feeling jittery [Recovered/Resolved]
  - Bruxism [Recovered/Resolved]
  - Therapeutic response unexpected [Recovered/Resolved]
